FAERS Safety Report 4281350-9 (Version None)
Quarter: 2004Q1

REPORT INFORMATION
  Report Type: 
  Country: None (occurrence: None)
  Receive Date: 20040129
  Receipt Date: 20040123
  Transmission Date: 20041129
  Serious: Yes (Disabling)
  Sender: FDA-Public Use
  Company Number: AR-ROCHE-356847

PATIENT
  Age: 61 Year
  Sex: Female
  Weight: 56 kg

DRUGS (3)
  1. RIVOTRIL [Suspect]
     Indication: DEPRESSION
     Route: 048
     Dates: start: 19980615
  2. HORMONE THERAPY [Concomitant]
     Indication: MENOPAUSE
     Dosage: EVERY 15 TO 20 WAS REPORTED.
  3. IBUPIRAC [Concomitant]
     Indication: HEADACHE
     Route: 048

REACTIONS (5)
  - CHEILITIS [None]
  - HYPOAESTHESIA ORAL [None]
  - LIP DRY [None]
  - OEDEMA MOUTH [None]
  - ORAL MUCOSAL DISORDER [None]
